FAERS Safety Report 5574057-9 (Version None)
Quarter: 2007Q4

REPORT INFORMATION
  Report Type: 
  Country: None (occurrence: None)
  Receive Date: 20071221
  Receipt Date: 20071210
  Transmission Date: 20080405
  Serious: Yes (Other)
  Sender: FDA-Public Use
  Company Number: 2007S1013115

PATIENT
  Age: 49 Year
  Sex: Male

DRUGS (1)
  1. LOVAN (FLUOXETINE HYDROCHLORIDE) (20 MG) [Suspect]
     Indication: DEPRESSION
     Dosage: 60 MG;EVERY MORNING;ORAL
     Route: 048

REACTIONS (9)
  - APATHY [None]
  - CONDITION AGGRAVATED [None]
  - DEPRESSION [None]
  - DISTURBANCE IN ATTENTION [None]
  - DRUG INEFFECTIVE [None]
  - HEADACHE [None]
  - NAUSEA [None]
  - PHARMACEUTICAL PRODUCT COMPLAINT [None]
  - SUICIDAL IDEATION [None]
